FAERS Safety Report 7174867-0 (Version None)
Quarter: 2010Q4

REPORT INFORMATION
  Report Type: 
  Country: None (occurrence: None)
  Receive Date: 20101219
  Receipt Date: 20101214
  Transmission Date: 20110411
  Serious: Yes (Other)
  Sender: FDA-Public Use
  Company Number: US-RB-016714-10

PATIENT
  Age: 43 Year
  Sex: Female

DRUGS (2)
  1. SUBOXONE [Suspect]
     Indication: PRODUCT USED FOR UNKNOWN INDICATION
     Dosage: SUBLINGUAL FILM- DOSING INFORMATION UNKNOWN
     Route: 065
  2. OPIOIDS [Suspect]
     Indication: PRODUCT USED FOR UNKNOWN INDICATION
     Dosage: UNKNOWN DOSING DETAILS
     Route: 065

REACTIONS (2)
  - ABDOMINAL PAIN UPPER [None]
  - PANCREATIC MASS [None]
